FAERS Safety Report 4854835-1 (Version None)
Quarter: 2005Q4

REPORT INFORMATION
  Report Type: 
  Country: None (occurrence: None)
  Receive Date: 20051213
  Receipt Date: 20051130
  Transmission Date: 20060501
  Serious: Yes (Death, Hospitalization)
  Sender: FDA-Public Use
  Company Number: 99279782

PATIENT
  Age: 81 Year
  Sex: Male

DRUGS (2)
  1. CARDURA [Suspect]
     Indication: BLOOD PRESSURE INCREASED
     Dosage: 2 MG (2 MG, 1 IN 1 D) ORAL
     Route: 048
     Dates: start: 19980401
  2. OSYROL-LASIX (FUROSEMIDE SPIRONOLACTONE) [Concomitant]

REACTIONS (3)
  - CARDIAC DISORDER [None]
  - MYOCARDIAL INFARCTION [None]
  - OEDEMA [None]
